FAERS Safety Report 10058676 (Version 3)
Quarter: 2014Q2

REPORT INFORMATION
  Report Type: Spontaneous
  Country: TR (occurrence: TR)
  Receive Date: 20140404
  Receipt Date: 20140508
  Transmission Date: 20141212
  Serious: Yes (Other)
  Sender: FDA-Public Use
  Company Number: TR-VERTEX PHARMACEUTICALS INC-2013-006720

PATIENT
  Age: 46 Year
  Sex: Male

DRUGS (3)
  1. INCIVO [Suspect]
     Indication: HEPATITIS C
     Dosage: 750 MG, TID
     Route: 048
     Dates: start: 20130502
  2. PEGINTERFERON ALFA [Suspect]
     Indication: HEPATITIS C
  3. RIBAVIRIN [Suspect]
     Indication: HEPATITIS C

REACTIONS (13)
  - Depression [Unknown]
  - Leukopenia [Unknown]
  - Penile pain [Unknown]
  - Pruritus genital [Recovered/Resolved]
  - Nasopharyngitis [Unknown]
  - Anxiety [Unknown]
  - Insomnia [Unknown]
  - Restlessness [Unknown]
  - Anorectal disorder [Unknown]
  - Asthenia [Unknown]
  - Penile burning sensation [Recovered/Resolved]
  - Thrombocytopenia [Unknown]
  - Pruritus [Unknown]
